FAERS Safety Report 13821841 (Version 2)
Quarter: 2017Q3

REPORT INFORMATION
  Report Type: Spontaneous
  Country: EG (occurrence: EG)
  Receive Date: 20170801
  Receipt Date: 20170808
  Transmission Date: 20171127
  Serious: Yes (Other)
  Sender: FDA-Public Use
  Company Number: EG-009507513-1707EGY012990

PATIENT
  Age: 30 Year
  Sex: Female

DRUGS (4)
  1. CLOMID [Suspect]
     Active Substance: CLOMIPHENE CITRATE
     Indication: OVULATION INDUCTION
     Dosage: 50 MG, UNK; FOR 10 DAYS BEFORE THE MENSTRUATION
     Route: 048
  2. PUREGON 100 I.U. [Suspect]
     Active Substance: FOLLITROPIN
     Indication: OVULATION INDUCTION
     Dosage: 100 IU/0.5 ML, ONCE ON THE LAST DAY OF THE MENSTRUATION; STRENGTH: 100 IU/0.5 ML
     Route: 030
  3. MENOGON [Suspect]
     Active Substance: MENOTROPINS
     Indication: OVULATION INDUCTION
     Dosage: 75 MG, UNK
  4. CLOMID [Suspect]
     Active Substance: CLOMIPHENE CITRATE
     Dosage: 50 MG, UNK; 10 DAYS AFTER MENSTRUATION
     Route: 048

REACTIONS (2)
  - Haemorrhage [Recovered/Resolved]
  - Ovarian hyperstimulation syndrome [Unknown]
